FAERS Safety Report 24205265 (Version 1)
Quarter: 2024Q3

REPORT INFORMATION
  Report Type: Spontaneous
  Country: US (occurrence: None)
  Receive Date: 20240812
  Receipt Date: 20240812
  Transmission Date: 20241016
  Serious: Yes (Other)
  Sender: Public
  Company Number: None

PATIENT
  Age: 44 Year
  Sex: Female
  Weight: 67.05 kg

DRUGS (17)
  1. BUPRENORPHINE [Suspect]
     Active Substance: BUPRENORPHINE
     Indication: Dependence
     Dosage: 90 TABLETS 3 TIMES A DAY ORAL
     Route: 048
     Dates: start: 20071130
  2. BUPRENORPHINE [Suspect]
     Active Substance: BUPRENORPHINE
     Indication: Pain management
  3. BUPRENORPHINE [Concomitant]
     Active Substance: BUPRENORPHINE
  4. ADDERALL [Concomitant]
     Active Substance: AMPHETAMINE ASPARTATE\AMPHETAMINE SULFATE\DEXTROAMPHETAMINE SACCHARATE\DEXTROAMPHETAMINE SULFATE
  5. VIIBRYD [Concomitant]
     Active Substance: VILAZODONE HYDROCHLORIDE
  6. GABAPENTIN [Concomitant]
     Active Substance: GABAPENTIN
  7. AUBAGIO [Concomitant]
     Active Substance: TERIFLUNOMIDE
  8. DETROL LA [Concomitant]
     Active Substance: TOLTERODINE TARTRATE
  9. TIZANIDINE [Concomitant]
     Active Substance: TIZANIDINE
  10. UNSPECIFIED INGREDIENT [Concomitant]
     Active Substance: UNSPECIFIED INGREDIENT
  11. VITAMIN D [Concomitant]
     Active Substance: VITAMIN D NOS
  12. RIBOFLAVIN [Concomitant]
     Active Substance: RIBOFLAVIN
  13. MAGNESIUM [Concomitant]
     Active Substance: MAGNESIUM
  14. GLYCINATE [Concomitant]
  15. BIOTIN [Concomitant]
     Active Substance: BIOTIN
  16. FISH OIL [Concomitant]
     Active Substance: FISH OIL
  17. WOMEN^S MULTI VITAMIN [Concomitant]

REACTIONS (5)
  - Multiple sclerosis [None]
  - Tooth discolouration [None]
  - Dental caries [None]
  - Dental caries [None]
  - Injury [None]

NARRATIVE: CASE EVENT DATE: 20110601
